FAERS Safety Report 4873156-4 (Version None)
Quarter: 2006Q1

REPORT INFORMATION
  Report Type: 
  Country: None (occurrence: None)
  Receive Date: 20060105
  Receipt Date: 20060102
  Transmission Date: 20060701
  Serious: Yes (Other)
  Sender: FDA-Public Use
  Company Number: DE-GLAXOSMITHKLINE-D0048358A

PATIENT
  Sex: Male

DRUGS (1)
  1. ZEFFIX [Suspect]
     Route: 065

REACTIONS (1)
  - LEUKOPENIA [None]
